FAERS Safety Report 23175187 (Version 2)
Quarter: 2023Q4

REPORT INFORMATION
  Report Type: Spontaneous
  Country: BR (occurrence: BR)
  Receive Date: 20231113
  Receipt Date: 20231226
  Transmission Date: 20240110
  Serious: No
  Sender: FDA-Public Use
  Company Number: BR-BoehringerIngelheim-2023-BI-271441

PATIENT
  Sex: Female
  Weight: 35 kg

DRUGS (1)
  1. SPIRIVA RESPIMAT [Suspect]
     Active Substance: TIOTROPIUM BROMIDE
     Indication: Asthma
     Dosage: ONE PUFF, ONCE A DAY.?FORM OF ADMIN: AEROSOL.
     Route: 055
     Dates: end: 20231105

REACTIONS (2)
  - Medication error [Unknown]
  - Expired device used [Recovered/Resolved]
